FAERS Safety Report 9486589 (Version 1)
Quarter: 2013Q3

REPORT INFORMATION
  Report Type: Spontaneous
  Country: IT (occurrence: None)
  Receive Date: 20130823
  Receipt Date: 20130823
  Transmission Date: 20140515
  Serious: Yes (Other)
  Sender: FDA-Public Use
  Company Number: GER/ITL/13/0034120

PATIENT
  Age: 31 Year
  Sex: Female

DRUGS (6)
  1. OLANZAPINE (OLANZAPINE) [Suspect]
     Indication: BORDERLINE PERSONALITY DISORDER
     Route: 048
     Dates: start: 20130101, end: 20130811
  2. RISPERDAL (RISPERIDONE) [Suspect]
     Indication: BORDERLINE PERSONALITY DISORDER
     Route: 048
     Dates: start: 20130720, end: 20130811
  3. DEPAKIN (VALPROATE SODIUM) [Concomitant]
  4. PRIMIDONE (PRIMIDONE) [Concomitant]
  5. DELORAZEPAM (DELORAZEPAM) [Concomitant]
  6. CITALOPRAM (CITALOPRAM) [Concomitant]

REACTIONS (3)
  - Face oedema [None]
  - Localised oedema [None]
  - Oedema peripheral [None]
